FAERS Safety Report 21066181 (Version 2)
Quarter: 2022Q4

REPORT INFORMATION
  Report Type: Spontaneous
  Country: US (occurrence: US)
  Receive Date: 20220711
  Receipt Date: 20221005
  Transmission Date: 20230112
  Serious: No
  Sender: FDA-Public Use
  Company Number: US-INTRA-CELLULAR THERAPIES, INC.-2022ICT00694

PATIENT
  Age: 47 Year
  Sex: Female
  Weight: 38.549 kg

DRUGS (9)
  1. CAPLYTA [Suspect]
     Active Substance: LUMATEPERONE
     Indication: Bipolar disorder
     Dosage: 42 MG, 1X/DAY
     Route: 048
     Dates: start: 20220609, end: 20220611
  2. BUSPAR [Concomitant]
     Active Substance: BUSPIRONE HYDROCHLORIDE
  3. ZANAFLEX [Concomitant]
     Active Substance: TIZANIDINE HYDROCHLORIDE
  4. VIVITROL [Concomitant]
     Active Substance: NALTREXONE
  5. PRAZOSIN [Concomitant]
     Active Substance: PRAZOSIN
  6. GABAPENTIN [Concomitant]
     Active Substance: GABAPENTIN
  7. MOBIC [Concomitant]
     Active Substance: MELOXICAM
  8. ACAMPROSATE [Concomitant]
     Active Substance: ACAMPROSATE
  9. OMEPRAZOLE [Concomitant]
     Active Substance: OMEPRAZOLE

REACTIONS (4)
  - Pyrexia [Unknown]
  - Chills [Unknown]
  - Pain [Unknown]
  - Decreased appetite [Unknown]

NARRATIVE: CASE EVENT DATE: 20220609
